FAERS Safety Report 7572364-1 (Version None)
Quarter: 2011Q2

REPORT INFORMATION
  Report Type: 
  Country: None (occurrence: None)
  Receive Date: 20110624
  Receipt Date: 20110615
  Transmission Date: 20111010
  Serious: Yes (Other)
  Sender: FDA-Public Use
  Company Number: US-ASTRAZENECA-2011SE28940

PATIENT
  Age: 60 Year
  Sex: Female

DRUGS (3)
  1. METFORMIN HCL [Concomitant]
  2. ATACAND HCT [Suspect]
     Route: 048
  3. ATACAND [Suspect]
     Route: 048

REACTIONS (2)
  - MYOCARDIAL INFARCTION [None]
  - CARDIAC PACEMAKER INSERTION [None]
